FAERS Safety Report 9854263 (Version 1)
Quarter: 2014Q1

REPORT INFORMATION
  Report Type: Report from Study
  Country: US (occurrence: US)
  Receive Date: 20140130
  Receipt Date: 20140130
  Transmission Date: 20141002
  Serious: Yes (Other)
  Sender: FDA-Public Use
  Company Number: US-ROCHE-1341197

PATIENT
  Age: 9 Year
  Sex: Male
  Weight: 22.3 kg

DRUGS (2)
  1. NUTROPIN [Suspect]
     Indication: GROWTH HORMONE DEFICIENCY
     Route: 058
  2. NUTROPIN [Suspect]
     Route: 058

REACTIONS (2)
  - Headache [Unknown]
  - Cardiac murmur [Unknown]
